FAERS Safety Report 10265327 (Version 1)
Quarter: 2014Q2

REPORT INFORMATION
  Report Type: Spontaneous
  Country: CA (occurrence: CA)
  Receive Date: 20140627
  Receipt Date: 20140627
  Transmission Date: 20141212
  Serious: Yes (Hospitalization)
  Sender: FDA-Public Use
  Company Number: CA-BAYER-2014-095579

PATIENT
  Sex: 0

DRUGS (1)
  1. XOFIGO [Suspect]

REACTIONS (2)
  - Clostridium difficile infection [None]
  - Diarrhoea [None]
